FAERS Safety Report 4381785-X (Version None)
Quarter: 2004Q2

REPORT INFORMATION
  Report Type: 
  Country: None (occurrence: None)
  Receive Date: 20040615
  Receipt Date: 20040531
  Transmission Date: 20050107
  Serious: Yes (Death)
  Sender: FDA-Public Use
  Company Number: JP-JNJFOC-20040504987

PATIENT
  Sex: Female

DRUGS (7)
  1. FENTANYL [Suspect]
     Indication: CANCER PAIN
     Dosage: 1.25 MG, 1 IN 3 DAY, TRANSDERMAL
     Route: 062
     Dates: start: 20040423, end: 20040426
  2. FENTANYL [Suspect]
     Indication: CANCER PAIN
     Dosage: 1.25 MG, 1 IN 3 DAY, TRANSDERMAL
     Route: 062
     Dates: start: 20040426, end: 20040502
  3. FENTANYL [Suspect]
     Indication: CANCER PAIN
     Dosage: 1.25 MG, 1 IN 3 DAY, TRANSDERMAL
     Route: 062
     Dates: start: 20040502, end: 20040508
  4. FAMOTIDINE [Concomitant]
  5. FERRIC OXIDE SACCHARATED (ALL OTHER THERAPEUTIC PRODUCTS) [Concomitant]
  6. MORPHINE HYDROCHLORIDE (MORHPHINE HYDROCHLORIDE) [Concomitant]
  7. TAZOBACTAM PIPERACILLIN (PIP/TAZO) [Concomitant]

REACTIONS (14)
  - ALANINE AMINOTRANSFERASE INCREASED [None]
  - ANAEMIA [None]
  - ASPARTATE AMINOTRANSFERASE INCREASED [None]
  - BLOOD ALKALINE PHOSPHATASE INCREASED [None]
  - BLOOD UREA INCREASED [None]
  - FISTULA [None]
  - LEUKOCYTOSIS [None]
  - LEUKOPENIA [None]
  - MALIGNANT NEOPLASM PROGRESSION [None]
  - NECROSIS [None]
  - OVARIAN CANCER [None]
  - SEPSIS [None]
  - VESICAL FISTULA [None]
  - WHITE BLOOD CELL COUNT INCREASED [None]
